FAERS Safety Report 15525576 (Version 1)
Quarter: 2018Q4

REPORT INFORMATION
  Report Type: Spontaneous
  Country: US (occurrence: US)
  Receive Date: 20181019
  Receipt Date: 20181019
  Transmission Date: 20190205
  Serious: Yes (Other)
  Sender: FDA-Public Use
  Company Number: PHHY2018US126907

PATIENT
  Age: 37 Year
  Sex: Female

DRUGS (3)
  1. LEUPRORELIN [Suspect]
     Active Substance: LEUPROLIDE ACETATE
     Indication: OVULATION INDUCTION
     Dosage: UNK
     Route: 065
  2. FOLLICLE STIMULATING HORMONE, RECOMBINANT [Concomitant]
     Active Substance: FOLLITROPIN
     Dosage: 1825 IU, QD
     Route: 065
  3. FOLLICLE STIMULATING HORMONE, RECOMBINANT [Concomitant]
     Active Substance: FOLLITROPIN
     Indication: PRODUCT USED FOR UNKNOWN INDICATION
     Dosage: 225 IU, QD
     Route: 065

REACTIONS (1)
  - Neoplasm progression [Unknown]
